FAERS Safety Report 5216001-X (Version None)
Quarter: 2007Q1

REPORT INFORMATION
  Report Type: 
  Country: None (occurrence: None)
  Receive Date: 20070118
  Receipt Date: 20070105
  Transmission Date: 20070707
  Serious: Yes (Hospitalization)
  Sender: FDA-Public Use
  Company Number: 234724

PATIENT
  Age: 71 Year
  Sex: Male
  Weight: 68.9 kg

DRUGS (1)
  1. RITUXAN [Suspect]
     Indication: RHEUMATOID ARTHRITIS
     Dates: start: 20061010

REACTIONS (3)
  - FALL [None]
  - HIP FRACTURE [None]
  - URINARY TRACT INFECTION [None]
